FAERS Safety Report 8153710 (Version 6)
Quarter: 2013Q3

REPORT INFORMATION
  Report Type: Spontaneous
  Country: US (occurrence: US)
  Receive Date: 20110923
  Receipt Date: 20130910
  Transmission Date: 20140515
  Serious: Yes (Disabling, Other)
  Sender: FDA-Public Use
  Company Number: US-B.I. PHARMACEUTICALS,INC./RIDGEFIELD-2011-BP-22469BP

PATIENT
  Age: 82 Year
  Sex: Female

DRUGS (15)
  1. PRADAXA [Suspect]
     Indication: ATRIAL FIBRILLATION
     Dosage: 300 MG
     Route: 048
     Dates: start: 201011
  2. PRADAXA [Suspect]
     Dosage: 300 MG
     Route: 048
     Dates: start: 201012
  3. LISINOPRIL [Concomitant]
     Indication: HYPERTENSION
     Dosage: 30 MG
     Route: 048
     Dates: start: 2001
  4. KLOR-CON [Concomitant]
     Indication: BLOOD POTASSIUM DECREASED
     Dosage: 24 MEQ
     Route: 048
     Dates: start: 2001
  5. FUROSEMIDE [Concomitant]
     Indication: FLUID RETENTION
     Dosage: 40 MG
     Route: 048
     Dates: start: 2001
  6. GLYBURIDE [Concomitant]
     Indication: DIABETES MELLITUS
     Dosage: 3 MG
     Route: 048
     Dates: start: 1996
  7. GLYBURIDE [Concomitant]
     Dosage: 10 MG
     Route: 048
  8. OXYBUTYNIN [Concomitant]
     Indication: BLADDER DISORDER
     Dosage: 5 MG
     Route: 048
     Dates: start: 2001
  9. CLONIDINE [Concomitant]
     Indication: HYPERTENSION
     Dosage: 0.4 MG
     Route: 048
     Dates: start: 2004
  10. METOPROLOL [Concomitant]
     Indication: ATRIAL FIBRILLATION
     Dosage: 100 MG
     Route: 048
     Dates: start: 2004
  11. ASA [Concomitant]
     Indication: PROPHYLAXIS
     Dosage: 81 MG
     Route: 048
     Dates: start: 2001
  12. OMEPRAZOLE [Concomitant]
     Dosage: 20 MG
  13. FELODIPINE [Concomitant]
     Dosage: 10 MG
  14. LANTUS [Concomitant]
     Indication: DIABETES MELLITUS
     Dosage: 12 UNIT DAILY DOSE; FORMULATION: SUBCUTANEOUS
     Route: 058
  15. HYDROCHLOROTHIAZIDE [Concomitant]
     Indication: HYPERTENSION
     Dosage: 100 MG
     Route: 048

REACTIONS (8)
  - Retinal vein occlusion [Not Recovered/Not Resolved]
  - Haemorrhage [Not Recovered/Not Resolved]
  - Thrombosis [Not Recovered/Not Resolved]
  - Blindness unilateral [Not Recovered/Not Resolved]
  - Blindness [Not Recovered/Not Resolved]
  - Eye haemorrhage [Recovered/Resolved]
  - Eye haemorrhage [Recovered/Resolved]
  - Blindness [Not Recovered/Not Resolved]
